FAERS Safety Report 21067731 (Version 1)
Quarter: 2022Q3

REPORT INFORMATION
  Report Type: Spontaneous
  Country: US (occurrence: US)
  Receive Date: 20220712
  Receipt Date: 20220712
  Transmission Date: 20221027
  Serious: Yes (Other)
  Sender: FDA-Public Use
  Company Number: US-SA-SAC20220708001931

PATIENT
  Age: 43 Year
  Sex: Female

DRUGS (5)
  1. DUPIXENT [Suspect]
     Active Substance: DUPILUMAB
     Indication: Dermatitis atopic
     Route: 058
     Dates: start: 20210603
  2. LORATADINE [Concomitant]
     Active Substance: LORATADINE
  3. OMEPRAZOLE [Concomitant]
     Active Substance: OMEPRAZOLE
  4. VACUNA PFIZER-BIONTECH COVID-19 [Concomitant]
     Indication: Immunisation
  5. MODERNA COVID-19 VACCINE [Concomitant]
     Active Substance: ELASOMERAN
     Indication: Immunisation

REACTIONS (5)
  - Kidney infection [Unknown]
  - Illness [Unknown]
  - Condition aggravated [Unknown]
  - Pain [Unknown]
  - Colitis [Unknown]

NARRATIVE: CASE EVENT DATE: 20220301
